FAERS Safety Report 24403188 (Version 1)
Quarter: 2024Q4

REPORT INFORMATION
  Report Type: Report from Study
  Country: IT (occurrence: IT)
  Receive Date: 20241007
  Receipt Date: 20241007
  Transmission Date: 20250114
  Serious: No
  Sender: ROCHE
  Company Number: IT-ROCHE-2575920

PATIENT
  Age: 69 Year
  Sex: Female

DRUGS (4)
  1. OBINUTUZUMAB [Suspect]
     Active Substance: OBINUTUZUMAB
     Indication: Follicular lymphoma
     Dosage: ON DAY 1, 8, 15 OF CYCLE 1 AN DAY 1 OF CYCLES 2-6 OR 2-8. MAINTENANCE PHASE: 1000 MG IV EVERY 2 MONT
     Route: 042
     Dates: start: 20190702
  2. VINCRISTINE [Concomitant]
     Active Substance: VINCRISTINE
     Dates: start: 20190702
  3. CYCLOPHOSPHAMIDE [Concomitant]
     Active Substance: CYCLOPHOSPHAMIDE
     Dates: start: 20190702
  4. PREDNISONE [Concomitant]
     Active Substance: PREDNISONE
     Dosage: (100 MG X 5 DAYS STARTING FROM THE DAY OF THE INFUSION WITH OBINOTUZUMAB)
     Dates: start: 20190702

REACTIONS (7)
  - Paraesthesia [Recovered/Resolved]
  - Asthenia [Recovered/Resolved]
  - Erythema [Recovered/Resolved]
  - Arthralgia [Recovered/Resolved]
  - Visual impairment [Recovered/Resolved]
  - Myalgia [Recovered/Resolved]
  - Off label use [Unknown]

NARRATIVE: CASE EVENT DATE: 20190806
